FAERS Safety Report 25980278 (Version 1)
Quarter: 2025Q4

REPORT INFORMATION
  Report Type: Spontaneous
  Country: US (occurrence: US)
  Receive Date: 20251030
  Receipt Date: 20251030
  Transmission Date: 20260117
  Serious: No
  Sender: LABORATOIRES SERB
  Company Number: US-SERB S.A.S.-2187578

PATIENT
  Age: 38 Year
  Sex: Male

DRUGS (8)
  1. CROFAB [Suspect]
     Active Substance: AGKISTRODON PISCIVORUS IMMUNE FAB ANTIVENIN (OVINE)\CROTALUS ADAMANTEUS IMMUNE FAB ANTIVENIN (OVINE)
     Indication: Snake bite
  2. SALINE [Concomitant]
     Active Substance: SODIUM CHLORIDE
  3. Fresh frzoen plasma [Concomitant]
  4. CRYOPRECIPITATED ANTIHEMOPHILIC FACTOR (HUMAN) [Concomitant]
     Active Substance: CRYOPRECIPITATED ANTIHEMOPHILIC FACTOR (HUMAN)
  5. LORAZEPAM [Concomitant]
     Active Substance: LORAZEPAM
  6. The tetanus, diphtheria, and acellular?pertussis vaccine. (DIPHTHERIA [Concomitant]
  7. ONDANSETRON [Concomitant]
     Active Substance: ONDANSETRON
  8. MORPHINE SULFATE [Concomitant]
     Active Substance: MORPHINE SULFATE

REACTIONS (1)
  - International normalised ratio increased [Recovered/Resolved]
